FAERS Safety Report 14881928 (Version 1)
Quarter: 2018Q2

REPORT INFORMATION
  Report Type: Report from Study
  Country: US (occurrence: US)
  Receive Date: 20180511
  Receipt Date: 20180511
  Transmission Date: 20180711
  Serious: Yes (Hospitalization, Other)
  Sender: FDA-Public Use
  Company Number: US-JAZZ-2018-US-007045

PATIENT
  Sex: Female

DRUGS (19)
  1. XYREM [Suspect]
     Active Substance: SODIUM OXYBATE
     Dosage: 4.5 G, BID
     Route: 048
     Dates: start: 201203, end: 201709
  2. AMBIEN CR [Concomitant]
     Active Substance: ZOLPIDEM TARTRATE
  3. ASPIR 81 [Concomitant]
  4. TYLENOL ARTHRITIS PAIN [Concomitant]
     Active Substance: ACETAMINOPHEN
  5. VYVANSE [Concomitant]
     Active Substance: LISDEXAMFETAMINE DIMESYLATE
  6. DIPHENHYDRAMINE HYDROCHLORIDE. [Concomitant]
     Active Substance: DIPHENHYDRAMINE HYDROCHLORIDE
  7. ENBREL [Concomitant]
     Active Substance: ETANERCEPT
  8. MEFENAMIC ACID. [Concomitant]
     Active Substance: MEFENAMIC ACID
  9. ALEVE [Concomitant]
     Active Substance: NAPROXEN SODIUM
  10. HUMIRA [Concomitant]
     Active Substance: ADALIMUMAB
  11. SULFASALAZINE. [Concomitant]
     Active Substance: SULFASALAZINE
  12. XYREM [Suspect]
     Active Substance: SODIUM OXYBATE
     Indication: NARCOLEPSY
     Dosage: 2.25 G, BID
     Route: 048
     Dates: start: 201106, end: 201107
  13. XYREM [Suspect]
     Active Substance: SODIUM OXYBATE
     Dosage: DOSE ADJUSTMENT
     Route: 048
     Dates: start: 201107, end: 201202
  14. NUVIGIL [Concomitant]
     Active Substance: ARMODAFINIL
  15. PSEUDOEPHEDRINE [Concomitant]
     Active Substance: PSEUDOEPHEDRINE
  16. MELOXICAM. [Concomitant]
     Active Substance: MELOXICAM
  17. METHOTREXATE. [Concomitant]
     Active Substance: METHOTREXATE
  18. PRISTIQ EXTENDED-RELEASE [Concomitant]
     Active Substance: DESVENLAFAXINE SUCCINATE
  19. WELLBUTRIN [Concomitant]
     Active Substance: BUPROPION HYDROCHLORIDE

REACTIONS (4)
  - Pre-eclampsia [Recovered/Resolved]
  - Periodic limb movement disorder [Recovered/Resolved]
  - Exposure during pregnancy [Unknown]
  - Feeling abnormal [Recovered/Resolved]
